FAERS Safety Report 25032140 (Version 1)
Quarter: 2025Q1

REPORT INFORMATION
  Report Type: Spontaneous
  Country: ES (occurrence: ES)
  Receive Date: 20250303
  Receipt Date: 20250303
  Transmission Date: 20250409
  Serious: Yes (Hospitalization, Other)
  Sender: PFIZER
  Company Number: None

PATIENT
  Age: 74 Year
  Sex: Female

DRUGS (5)
  1. DOXORUBICIN HYDROCHLORIDE [Suspect]
     Active Substance: DOXORUBICIN HYDROCHLORIDE
     Indication: Follicular lymphoma stage II
     Dosage: 80 MG IN MONTHLY CYCLES
     Route: 042
     Dates: start: 20241029, end: 20250113
  2. VINCRISTINE [Suspect]
     Active Substance: VINCRISTINE
     Indication: Follicular lymphoma stage II
     Dosage: CYCLES OF 1.4 MG/ML (2 MG)
     Route: 042
     Dates: start: 20241029, end: 20250113
  3. CYCLOPHOSPHAMIDE [Suspect]
     Active Substance: CYCLOPHOSPHAMIDE
     Indication: Follicular lymphoma stage II
     Dosage: 750/M2 1199 MG IN CYCLES (LAST DATE 5TH CYCLE)
     Route: 042
     Dates: start: 20241029, end: 20250113
  4. PREDNISONE [Concomitant]
     Active Substance: PREDNISONE
     Indication: Follicular lymphoma stage II
     Dosage: 30 MG ON DAYS +1 TO +5
     Route: 048
     Dates: start: 20241029, end: 20250118
  5. PREDNISONE [Concomitant]
     Active Substance: PREDNISONE
     Indication: Follicular lymphoma stage II
     Route: 048
     Dates: start: 20241029, end: 20250118

REACTIONS (2)
  - Febrile neutropenia [Recovered/Resolved]
  - Pneumonia [Recovered/Resolved]

NARRATIVE: CASE EVENT DATE: 20250121
